FAERS Safety Report 4300712-4 (Version None)
Quarter: 2004Q1

REPORT INFORMATION
  Report Type: 
  Country: None (occurrence: None)
  Receive Date: 20040218
  Receipt Date: 20040204
  Transmission Date: 20041129
  Serious: Yes (Other)
  Sender: FDA-Public Use
  Company Number: USA040258152

PATIENT
  Age: 50 Year
  Sex: Male
  Weight: 109 kg

DRUGS (2)
  1. ZYPREXA [Suspect]
     Indication: BIPOLAR DISORDER
     Dosage: 10 MG/ IN THE EVENING
     Dates: start: 20020101
  2. ZOLOFT [Concomitant]

REACTIONS (2)
  - HEPATOCELLULAR DAMAGE [None]
  - SOMNOLENCE [None]
